FAERS Safety Report 6457425-2 (Version None)
Quarter: 2009Q4

REPORT INFORMATION
  Report Type: 
  Country: None (occurrence: None)
  Receive Date: 20091024
  Receipt Date: 20091109
  Transmission Date: 20100525
  Serious: Yes (Hospitalization)
  Sender: FDA-Public Use
  Company Number: 2009AC000081

PATIENT
  Age: 57 Year
  Sex: Female
  Weight: 104.3273 kg

DRUGS (31)
  1. DIGOXIN [Suspect]
     Dosage: .125 MG; QD; PO
     Route: 048
  2. RYTHMOL [Concomitant]
  3. AMIODARONE HCL [Concomitant]
  4. OXYCODONE HCL [Concomitant]
  5. LASIX [Concomitant]
  6. POTASSIUM [Concomitant]
  7. COREG [Concomitant]
  8. LISINOPRIL [Concomitant]
  9. LANTUS [Concomitant]
  10. GLYBURIDE [Concomitant]
  11. VASERETIC [Concomitant]
  12. PHENOBARBITAL TAB [Concomitant]
  13. TYLOX [Concomitant]
  14. MECLIZINE [Concomitant]
  15. BENICAR [Concomitant]
  16. CARVEDILOL [Concomitant]
  17. LORTAB [Concomitant]
  18. MULTI-VITAMIN [Concomitant]
  19. CENTRUM [Concomitant]
  20. ALBUTEROL [Concomitant]
  21. CARDIZEM [Concomitant]
  22. LANTUS [Concomitant]
  23. CIPRO [Concomitant]
  24. DIFLUCAN [Concomitant]
  25. IPRATROPIUM [Concomitant]
  26. PHENAZOPYRIDINE HCL TAB [Concomitant]
  27. WELCHOL [Concomitant]
  28. AMIODARONE HCL [Concomitant]
  29. BENICAR HYDROCHLOROTHIAIZDE [Concomitant]
  30. CARVEDILOL [Concomitant]
  31. XALATAN [Concomitant]

REACTIONS (26)
  - CAROTID ARTERY STENOSIS [None]
  - CHRONIC OBSTRUCTIVE PULMONARY DISEASE [None]
  - CONVULSION [None]
  - COUGH [None]
  - ECONOMIC PROBLEM [None]
  - EMPTY SELLA SYNDROME [None]
  - ESSENTIAL HYPERTENSION [None]
  - FLUID OVERLOAD [None]
  - HAEMORRHAGIC ANAEMIA [None]
  - HEADACHE [None]
  - HEARING IMPAIRED [None]
  - HYPERLIPIDAEMIA [None]
  - MIGRAINE [None]
  - MULTIPLE INJURIES [None]
  - MYOCARDIAL INFARCTION [None]
  - PLEURAL EFFUSION [None]
  - PNEUMONIA [None]
  - POST PROCEDURAL HAEMORRHAGE [None]
  - RHABDOMYOLYSIS [None]
  - SURGERY [None]
  - TYPE 2 DIABETES MELLITUS [None]
  - UNEVALUABLE EVENT [None]
  - UNRESPONSIVE TO STIMULI [None]
  - URINARY TRACT INFECTION [None]
  - VERTIGO [None]
  - VULVOVAGINAL CANDIDIASIS [None]
